FAERS Safety Report 12662415 (Version 1)
Quarter: 2016Q3

REPORT INFORMATION
  Report Type: Spontaneous
  Country: US (occurrence: US)
  Receive Date: 20160817
  Receipt Date: 20160817
  Transmission Date: 20161109
  Serious: No
  Sender: FDA-Public Use
  Company Number: US-ASTRAZENECA-2016SE72132

PATIENT
  Sex: Female
  Weight: 81.6 kg

DRUGS (4)
  1. OXYCODONE [Concomitant]
     Active Substance: OXYCODONE
     Indication: GLOSSODYNIA
     Dosage: 10.0MG EVERY 4 - 6 HOURS
     Route: 048
     Dates: start: 201508
  2. MOVANTIK [Suspect]
     Active Substance: NALOXEGOL OXALATE
     Indication: GLOSSODYNIA
     Route: 048
     Dates: start: 201606
  3. LEVOTHYROXINE. [Concomitant]
     Active Substance: LEVOTHYROXINE
     Indication: HYPOTHYROIDISM
     Route: 048
     Dates: start: 2006
  4. XANEX [Concomitant]
     Indication: SLEEP DISORDER
     Route: 048
     Dates: start: 2002

REACTIONS (4)
  - Hyperhidrosis [Unknown]
  - Off label use [Unknown]
  - Drug ineffective [Unknown]
  - Constipation [Unknown]

NARRATIVE: CASE EVENT DATE: 20160608
